FAERS Safety Report 9366957 (Version 1)
Quarter: 2013Q2

REPORT INFORMATION
  Report Type: Spontaneous
  Country: JP (occurrence: JP)
  Receive Date: 20130625
  Receipt Date: 20130625
  Transmission Date: 20140414
  Serious: Yes (Hospitalization)
  Sender: FDA-Public Use
  Company Number: JP-GLAXOSMITHKLINE-B0885997A

PATIENT
  Sex: Female

DRUGS (7)
  1. LAMICTAL [Suspect]
     Indication: BIPOLAR DISORDER
     Route: 048
     Dates: start: 20130213, end: 20130221
  2. LAMICTAL [Suspect]
     Indication: BIPOLAR DISORDER
     Route: 048
     Dates: start: 20130222, end: 20130318
  3. LIMAS [Concomitant]
     Indication: BIPOLAR DISORDER
     Route: 048
  4. JZOLOFT [Concomitant]
     Indication: BIPOLAR DISORDER
     Route: 048
  5. MIRTAZAPINE [Concomitant]
     Indication: BIPOLAR DISORDER
     Route: 048
  6. CONSTAN [Concomitant]
     Indication: BIPOLAR DISORDER
     Route: 048
  7. HALCION [Concomitant]
     Indication: INSOMNIA
     Route: 048

REACTIONS (4)
  - Drug eruption [Recovering/Resolving]
  - Rash [Unknown]
  - Lymphocyte count increased [Unknown]
  - Liver disorder [Recovering/Resolving]
